FAERS Safety Report 22131005 (Version 1)
Quarter: 2023Q1

REPORT INFORMATION
  Report Type: Spontaneous
  Country: US (occurrence: US)
  Receive Date: 20230323
  Receipt Date: 20230323
  Transmission Date: 20230418
  Serious: No
  Sender: FDA-Public Use
  Company Number: US-INNOCOLL BIOTHERAPEUTICS-2022INN00113

PATIENT
  Sex: Male
  Weight: 117.91 kg

DRUGS (6)
  1. XARACOLL [Suspect]
     Active Substance: BUPIVACAINE
     Indication: Inguinal hernia repair
     Dosage: 300 MG (6 COLLAGEN SQUARES), 3 DEEP TO THE EXTERNAL OBLIQUE FASCIA AND 3 BETWEEN SCARPAS FASCIA AND
     Dates: start: 20221122
  2. PLAVIX [Suspect]
     Active Substance: CLOPIDOGREL BISULFATE
     Indication: Transient ischaemic attack
     Dosage: UNK
     Dates: end: 20221117
  3. PLAVIX [Suspect]
     Active Substance: CLOPIDOGREL BISULFATE
     Dosage: UNK
     Dates: start: 20221124, end: 2022
  4. CALQUENCE [Suspect]
     Active Substance: ACALABRUTINIB
     Indication: Lymphoma
     Dosage: UNK
     Dates: end: 20221119
  5. CALQUENCE [Suspect]
     Active Substance: ACALABRUTINIB
     Dosage: UNK
     Dates: start: 20221125, end: 2022
  6. ASPIRIN [Concomitant]
     Active Substance: ASPIRIN
     Dosage: UNK

REACTIONS (3)
  - Post procedural haematoma [Recovered/Resolved]
  - Bloody discharge [Recovered/Resolved]
  - Pain [Unknown]

NARRATIVE: CASE EVENT DATE: 20220101
